FAERS Safety Report 4287116-8 (Version None)
Quarter: 2004Q1

REPORT INFORMATION
  Report Type: 
  Country: None (occurrence: None)
  Receive Date: 20040205
  Receipt Date: 20040126
  Transmission Date: 20041129
  Serious: Yes (Death, Other)
  Sender: FDA-Public Use
  Company Number: 2004003398

PATIENT
  Age: 83 Year
  Sex: Male

DRUGS (8)
  1. AMLODIPINE [Suspect]
     Indication: ILL-DEFINED DISORDER
     Dosage: 5 MG (DAILY), ORAL
     Route: 048
  2. ACETYLSALICYLIC ACID SRT [Suspect]
     Indication: ILL-DEFINED DISORDER
     Dosage: ORAL
     Route: 048
     Dates: end: 20031104
  3. NAFTIDROFURYL OXALATE (NAFTIDROFURYL OXALATE) [Suspect]
     Indication: ILL-DEFINED DISORDER
     Dosage: ORAL
     Route: 048
  4. FENOFIBRATE [Suspect]
     Indication: ILL-DEFINED DISORDER
     Dosage: ORAL
     Route: 048
     Dates: end: 20031104
  5. ACEBUTOLOL HCL [Suspect]
     Indication: ILL-DEFINED DISORDER
     Dosage: 200 MG (BID), ORAL
     Route: 048
  6. CYPROTERONE ACETATE (CYPROTERONE ACETATE) [Suspect]
     Indication: PROSTATE CANCER STAGE 0
     Dosage: ORAL
     Route: 048
     Dates: end: 20031104
  7. INSULIN HUMAN INJECTION, ISOPHANE (INSULIN HUMAN INJECTION, ISOPHANE) [Concomitant]
  8. GLYCEYL TRINITRATE (GLYCERYL TRINITRATE) [Concomitant]

REACTIONS (5)
  - CHOLESTASIS [None]
  - HEPATITIS FULMINANT [None]
  - PROTEIN TOTAL INCREASED [None]
  - PROTHROMBIN TIME PROLONGED [None]
  - SERUM FERRITIN INCREASED [None]
